FAERS Safety Report 20009217 (Version 2)
Quarter: 2021Q4

REPORT INFORMATION
  Report Type: Report from Study
  Country: BR (occurrence: BR)
  Receive Date: 20211029
  Receipt Date: 20211201
  Transmission Date: 20220303
  Serious: Yes (Other)
  Sender: FDA-Public Use
  Company Number: BR-ABBVIE-21K-020-4139452-00

PATIENT
  Sex: Female
  Weight: 107 kg

DRUGS (1)
  1. RINVOQ [Suspect]
     Active Substance: UPADACITINIB
     Indication: Rheumatoid arthritis
     Route: 048
     Dates: start: 20210708

REACTIONS (10)
  - Asthmatic crisis [Recovered/Resolved]
  - Pneumonitis [Unknown]
  - Productive cough [Unknown]
  - Pruritus [Recovering/Resolving]
  - Scab [Recovering/Resolving]
  - Blister [Recovering/Resolving]
  - Swelling [Not Recovered/Not Resolved]
  - Pain [Unknown]
  - Blister [Recovering/Resolving]
  - Peripheral swelling [Not Recovered/Not Resolved]

NARRATIVE: CASE EVENT DATE: 20210101
